FAERS Safety Report 19100844 (Version 2)
Quarter: 2021Q2

REPORT INFORMATION
  Report Type: Spontaneous
  Country: US (occurrence: US)
  Receive Date: 20210407
  Receipt Date: 20210423
  Transmission Date: 20210717
  Serious: No
  Sender: FDA-Public Use
  Company Number: US-ALEMBIC PHARMACUETICALS LIMITED-2021SCAL000168

PATIENT

DRUGS (1)
  1. TIMOLOL MALEATE. [Suspect]
     Active Substance: TIMOLOL MALEATE
     Indication: BORDERLINE GLAUCOMA
     Dosage: UNK, ONCE A DAY IN THE MORNING IN BOTH EYES
     Dates: start: 20210313, end: 20210325

REACTIONS (2)
  - Product substitution issue [None]
  - Eye discharge [Recovered/Resolved]

NARRATIVE: CASE EVENT DATE: 20210313
